FAERS Safety Report 23468546 (Version 1)
Quarter: 2024Q1

REPORT INFORMATION
  Report Type: Spontaneous
  Country: US (occurrence: None)
  Receive Date: 20240201
  Receipt Date: 20240201
  Transmission Date: 20240410
  Serious: No
  Sender: FDA-Public Use
  Company Number: None

PATIENT
  Age: 73 Year
  Sex: Female
  Weight: 70.31 kg

DRUGS (9)
  1. ADVAIR HFA [Suspect]
     Active Substance: FLUTICASONE PROPIONATE\SALMETEROL XINAFOATE
     Indication: Asthma
     Dosage: 2 PUFFS 2 TIMES/ DAILY  PUFFS
     Route: 055
     Dates: start: 20230805, end: 20231015
  2. LEVOTHYROXINE [Concomitant]
     Active Substance: LEVOTHYROXINE\LEVOTHYROXINE SODIUM
  3. HERBALS\TURMERIC [Concomitant]
     Active Substance: HERBALS\TURMERIC
  4. VITAMIN D GUMMY [Concomitant]
  5. COLLAGEN SUPPLEMENT [Concomitant]
  6. CALCIUM [Concomitant]
     Active Substance: CALCIUM
  7. UC-11 PLUS VITAMIN D3 [Concomitant]
  8. ALLERGY MEDICATION (NON-DROWSY) OTC [Concomitant]
  9. ROSUVASTATIN [Concomitant]
     Active Substance: ROSUVASTATIN

REACTIONS (3)
  - Dysphonia [None]
  - Memory impairment [None]
  - Eructation [None]

NARRATIVE: CASE EVENT DATE: 20230801
